FAERS Safety Report 21249704 (Version 1)
Quarter: 2022Q3

REPORT INFORMATION
  Report Type: Report from Study
  Country: US (occurrence: US)
  Receive Date: 20220824
  Receipt Date: 20220824
  Transmission Date: 20221027
  Serious: Yes (Other)
  Sender: FDA-Public Use
  Company Number: US-BRISTOL-MYERS SQUIBB COMPANY-2022-060327

PATIENT
  Sex: Female

DRUGS (3)
  1. ORENCIA [Suspect]
     Active Substance: ABATACEPT
     Indication: Rheumatoid arthritis
     Dosage: REFER TO NARRATIVEINCLUDECLINICAL
     Route: 042
     Dates: start: 202112
  2. ORENCIA [Suspect]
     Active Substance: ABATACEPT
     Route: 042
  3. IBUPROFEN [Concomitant]
     Active Substance: IBUPROFEN
     Indication: Product used for unknown indication
     Route: 065

REACTIONS (4)
  - Skin disorder [Unknown]
  - Drug ineffective [Unknown]
  - Barrett^s oesophagus [Unknown]
  - Renal disorder [Unknown]
